FAERS Safety Report 10015671 (Version 1)
Quarter: 2014Q1

REPORT INFORMATION
  Report Type: Spontaneous
  Country: US (occurrence: US)
  Receive Date: 20140317
  Receipt Date: 20140317
  Transmission Date: 20141002
  Serious: No
  Sender: FDA-Public Use
  Company Number: US-PFIZER INC-2014072187

PATIENT
  Sex: Female

DRUGS (2)
  1. ADVIL MIGRAINE [Suspect]
     Indication: MUSCULOSKELETAL CHEST PAIN
     Dosage: UNK
     Route: 048
  2. ADVIL MIGRAINE [Suspect]
     Indication: BONE PAIN

REACTIONS (1)
  - Drug ineffective for unapproved indication [Unknown]
